FAERS Safety Report 5954919-0 (Version None)
Quarter: 2008Q4

REPORT INFORMATION
  Report Type: 
  Country: None (occurrence: None)
  Receive Date: 20081113
  Receipt Date: 20081113
  Transmission Date: 20090506
  Serious: No
  Sender: FDA-Public Use
  Company Number: None

PATIENT
  Age: 62 Year
  Sex: Female
  Weight: 83.0083 kg

DRUGS (1)
  1. LIPITOR [Suspect]
     Indication: BLOOD CHOLESTEROL
     Dosage: ONE DAILY PO
     Route: 048
     Dates: start: 20070701, end: 20080613

REACTIONS (3)
  - ARTHRALGIA [None]
  - ARTHROPATHY [None]
  - ASTHENIA [None]
